FAERS Safety Report 12353973 (Version 1)
Quarter: 2016Q2

REPORT INFORMATION
  Report Type: Report from Study
  Country: US (occurrence: US)
  Receive Date: 20160511
  Receipt Date: 20160511
  Transmission Date: 20160815
  Serious: No
  Sender: FDA-Public Use
  Company Number: US-AMGEN-USASL2016056713

PATIENT
  Age: 73 Year
  Sex: Female

DRUGS (1)
  1. ENBREL [Suspect]
     Active Substance: ETANERCEPT
     Indication: RHEUMATOID ARTHRITIS
     Dosage: 50 MG, QWK
     Route: 065
     Dates: start: 201603

REACTIONS (7)
  - Abdominal pain upper [Unknown]
  - Back pain [Unknown]
  - Arthropathy [Unknown]
  - Ocular hyperaemia [Unknown]
  - Nasal discomfort [Unknown]
  - Localised infection [Unknown]
  - Dry eye [Unknown]

NARRATIVE: CASE EVENT DATE: 2016
